FAERS Safety Report 10044927 (Version 1)
Quarter: 2014Q1

REPORT INFORMATION
  Report Type: Spontaneous
  Country: CN (occurrence: CN)
  Receive Date: 20140328
  Receipt Date: 20140328
  Transmission Date: 20141002
  Serious: Yes (Other)
  Sender: FDA-Public Use
  Company Number: CN-GLAXOSMITHKLINE-B0978723A

PATIENT
  Age: 43 Year
  Sex: Male
  Weight: 72 kg

DRUGS (2)
  1. HEPTODIN [Suspect]
     Indication: HEPATITIS B
     Dosage: 1TAB PER DAY
     Route: 048
     Dates: start: 2011
  2. ADEFOVIR DIPIVOXIL [Suspect]
     Indication: HEPATITIS B
     Dosage: 1CAP PER DAY
     Route: 048
     Dates: start: 201310, end: 201403

REACTIONS (2)
  - Feeling abnormal [Unknown]
  - Viral load increased [Not Recovered/Not Resolved]
